FAERS Safety Report 17533445 (Version 1)
Quarter: 2020Q1

REPORT INFORMATION
  Report Type: Spontaneous
  Country: CH (occurrence: CH)
  Receive Date: 20200312
  Receipt Date: 20200312
  Transmission Date: 20200409
  Serious: Yes (Hospitalization)
  Sender: FDA-Public Use
  Company Number: CH-PFIZER INC-2020103565

PATIENT
  Age: 63 Year
  Sex: Male

DRUGS (26)
  1. TAZOBAC [Suspect]
     Active Substance: PIPERACILLIN SODIUM\TAZOBACTAM SODIUM
     Dosage: UNK
     Dates: start: 20200204, end: 20200209
  2. ALDACTONE [Suspect]
     Active Substance: SPIRONOLACTONE
     Dosage: 200 MG, DAILY
     Route: 048
     Dates: start: 20200221
  3. ATORVASTATINE [ATORVASTATIN CALCIUM] [Concomitant]
     Active Substance: ATORVASTATIN CALCIUM
     Dosage: UNK
  4. LAXOBERON [Concomitant]
     Active Substance: SODIUM PICOSULFATE
     Dosage: UNK
  5. OXYNORM [Concomitant]
     Active Substance: OXYCODONE HYDROCHLORIDE
     Dosage: UNK, AS NEEDED
  6. PREGABALIN. [Concomitant]
     Active Substance: PREGABALIN
     Dosage: UNK
  7. ANXIOLIT [Concomitant]
     Active Substance: OXAZEPAM
     Dosage: UNK, AS NEEDED
  8. ESCITALOPRAM [Concomitant]
     Active Substance: ESCITALOPRAM OXALATE
     Dosage: UNK
  9. COVERSUM N [Concomitant]
     Active Substance: PERINDOPRIL
     Dosage: UNK
  10. JARDIANCE MET [Concomitant]
     Active Substance: EMPAGLIFLOZIN\METFORMIN HYDROCHLORIDE
     Dosage: UNK
  11. DERMOVATE [Concomitant]
     Active Substance: CLOBETASOL
     Dosage: UNK
  12. DORZOLAMIDE HYDROCHLORIDE AND TIMOLOL MALEATE [Concomitant]
     Active Substance: DORZOLAMIDE HYDROCHLORIDE\TIMOLOL MALEATE
     Dosage: UNK
  13. CALCIMAGON D3 [Concomitant]
     Active Substance: CALCIUM\CHOLECALCIFEROL
     Dosage: UNK
  14. BENERVA [Concomitant]
     Active Substance: THIAMINE HYDROCHLORIDE
     Dosage: UNK
  15. AMLODIPINE [Concomitant]
     Active Substance: AMLODIPINE BESYLATE
     Dosage: UNK
  16. LUVIT D3 [Concomitant]
     Active Substance: CHOLECALCIFEROL
     Dosage: UNK
  17. NOVORAPID [Concomitant]
     Active Substance: INSULIN ASPART
     Dosage: UNK, AS NEEDED
  18. BELOC ZOK [Concomitant]
     Active Substance: METOPROLOL SUCCINATE
     Dosage: UNK
  19. OXYCODON [Concomitant]
     Active Substance: OXYCODONE
     Dosage: UNK
  20. TOVIAZ [Concomitant]
     Active Substance: FESOTERODINE FUMARATE
     Dosage: UNK
  21. OZEMPIC [Concomitant]
     Active Substance: SEMAGLUTIDE
     Dosage: UNK
  22. FEXOFENADINE [Concomitant]
     Active Substance: FEXOFENADINE HYDROCHLORIDE
     Dosage: UNK, AS NEEDED
  23. ALDACTONE [Suspect]
     Active Substance: SPIRONOLACTONE
     Dosage: 200 MG, DAILY
     Route: 048
     Dates: end: 20200217
  24. TRESIBA [Concomitant]
     Active Substance: INSULIN DEGLUDEC
     Dosage: UNK
  25. BECOZYME [VITAMIN B COMPLEX] [Concomitant]
     Active Substance: VITAMINS
     Dosage: UNK
  26. DAFALGAN [Concomitant]
     Active Substance: ACETAMINOPHEN
     Dosage: UNK, AS NEEDED

REACTIONS (4)
  - Pruritus [Unknown]
  - Rash maculo-papular [Unknown]
  - Hypersensitivity vasculitis [Recovering/Resolving]
  - Skin lesion [Unknown]

NARRATIVE: CASE EVENT DATE: 20200210
